FAERS Safety Report 9114283 (Version 1)
Quarter: 2013Q1

REPORT INFORMATION
  Report Type: Spontaneous
  Country: US (occurrence: None)
  Receive Date: 20130220
  Receipt Date: 20130220
  Transmission Date: 20140127
  Serious: No
  Sender: FDA-Public Use
  Company Number: None

PATIENT
  Age: 55 Year
  Sex: Female
  Weight: 76.2 kg

DRUGS (1)
  1. ESTRADIOL [Suspect]
     Dosage: 0.1MG/DAY ONCE PER WEEK TRANSDERMAL
     Route: 062
     Dates: start: 20130120, end: 20130214

REACTIONS (12)
  - Device deposit issue [None]
  - Application site erythema [None]
  - Skin irritation [None]
  - Menopausal symptoms [None]
  - Vaginal infection [None]
  - Hot flush [None]
  - Fatigue [None]
  - Headache [None]
  - Dizziness [None]
  - Nausea [None]
  - Hyperhidrosis [None]
  - Product quality issue [None]
